FAERS Safety Report 13626955 (Version 1)
Quarter: 2017Q2

REPORT INFORMATION
  Report Type: Spontaneous
  Country: US (occurrence: US)
  Receive Date: 20170608
  Receipt Date: 20170608
  Transmission Date: 20170830
  Serious: Yes (Life-Threatening, Disabling, Other)
  Sender: FDA-Public Use
  Company Number: None

PATIENT
  Age: 67 Year
  Sex: Female
  Weight: 67.19 kg

DRUGS (10)
  1. LINZESS [Concomitant]
     Active Substance: LINACLOTIDE
  2. ZOLPIDEM [Concomitant]
     Active Substance: ZOLPIDEM\ZOLPIDEM TARTRATE
  3. PRAVASTATIN. [Concomitant]
     Active Substance: PRAVASTATIN
  4. PRINIVIL [Suspect]
     Active Substance: LISINOPRIL
     Indication: HYPERTENSION
     Route: 048
     Dates: start: 20150609, end: 20170510
  5. BUSPIRONE [Concomitant]
     Active Substance: BUSPIRONE HYDROCHLORIDE
  6. SPIRIVA [Concomitant]
     Active Substance: TIOTROPIUM BROMIDE MONOHYDRATE
  7. VENTOLIN [Concomitant]
     Active Substance: ALBUTEROL SULFATE
  8. VITAMIN D [Concomitant]
     Active Substance: CHOLECALCIFEROL
  9. SYMBICORT [Concomitant]
     Active Substance: BUDESONIDE\FORMOTEROL FUMARATE DIHYDRATE
  10. PEPCID [Concomitant]
     Active Substance: FAMOTIDINE

REACTIONS (18)
  - Liver disorder [None]
  - Dyspnoea [None]
  - Fatigue [None]
  - Productive cough [None]
  - Weight increased [None]
  - Confusional state [None]
  - Suicidal ideation [None]
  - Blood urea increased [None]
  - Dyspepsia [None]
  - General physical health deterioration [None]
  - Cardiac disorder [None]
  - Feeling abnormal [None]
  - Dizziness [None]
  - Cholelithiasis [None]
  - Asthenia [None]
  - Lethargy [None]
  - Blood creatinine increased [None]
  - Loss of personal independence in daily activities [None]

NARRATIVE: CASE EVENT DATE: 20150609
